FAERS Safety Report 23228401 (Version 1)
Quarter: 2023Q4

REPORT INFORMATION
  Report Type: Other
  Country: None (occurrence: FR)
  Receive Date: 20231125
  Receipt Date: 20231125
  Transmission Date: 20240110
  Serious: Yes (Other)
  Sender: FDA-Public Use
  Company Number: FR-BIOLOGICAL E. LTD-2148683

PATIENT
  Age: 34 Year
  Sex: Female

DRUGS (2)
  1. NEOSTIGMINE METHYLSULFATE [Suspect]
     Active Substance: NEOSTIGMINE METHYLSULFATE
     Indication: Headache
     Route: 042
  2. ATROPINE [Suspect]
     Active Substance: ATROPINE\ATROPINE SULFATE
     Route: 042

REACTIONS (1)
  - Reversible cerebral vasoconstriction syndrome [Recovered/Resolved]
